FAERS Safety Report 13528403 (Version 1)
Quarter: 2017Q2

REPORT INFORMATION
  Report Type: Spontaneous
  Country: FR (occurrence: FR)
  Receive Date: 20170509
  Receipt Date: 20170509
  Transmission Date: 20170830
  Serious: Yes (Hospitalization)
  Sender: FDA-Public Use
  Company Number: FR-TEVA-765785ROM

PATIENT
  Age: 74 Year
  Sex: Female

DRUGS (5)
  1. PERINDOPRIL [Concomitant]
     Active Substance: PERINDOPRIL
  2. MODOPAR 50 MG /12,5 MG [Suspect]
     Active Substance: BENSERAZIDE HYDROCHLORIDE\LEVODOPA
     Indication: PARKINSON^S DISEASE
     Dosage: 2 DOSAGE FORMS DAILY;
     Route: 048
  3. KARDEGIC [Concomitant]
     Active Substance: ASPIRIN LYSINE
  4. AZILECT [Suspect]
     Active Substance: RASAGILINE MESYLATE
     Indication: PARKINSON^S DISEASE
     Dosage: 1 MILLIGRAM DAILY;
     Route: 048
     Dates: start: 20170301, end: 20170409
  5. SELOKEN [Concomitant]
     Active Substance: METOPROLOL

REACTIONS (2)
  - Urinary incontinence [Recovered/Resolved]
  - Somnolence [Recovered/Resolved]

NARRATIVE: CASE EVENT DATE: 201703
